FAERS Safety Report 22123988 (Version 2)
Quarter: 2023Q2

REPORT INFORMATION
  Report Type: Spontaneous
  Country: BR (occurrence: BR)
  Receive Date: 20230322
  Receipt Date: 20230404
  Transmission Date: 20230722
  Serious: Yes (Other)
  Sender: FDA-Public Use
  Company Number: BR-009507513-2303BRA006558

PATIENT
  Age: 41 Year
  Sex: Female

DRUGS (6)
  1. PEMBROLIZUMAB [Suspect]
     Active Substance: PEMBROLIZUMAB
     Indication: Triple negative breast cancer
     Dosage: NEOADJUVANT SYSTEMIC TREATMENT BASED ON THE KEYNOTE522 PROTOCOL
     Dates: start: 20220919, end: 20230210
  2. CARBOPLATIN [Suspect]
     Active Substance: CARBOPLATIN
     Indication: Triple negative breast cancer
     Dosage: NEOADJUVANT SYSTEMIC TREATMENT BASED ON THE KEYNOTE522 PROTOCOL
     Dates: start: 20220919, end: 20230210
  3. PACLITAXEL [Suspect]
     Active Substance: PACLITAXEL
     Indication: Triple negative breast cancer
     Dosage: NEOADJUVANT SYSTEMIC TREATMENT BASED ON THE KEYNOTE522 PROTOCOL
     Dates: start: 20220919, end: 20230210
  4. DOXORUBICIN [Suspect]
     Active Substance: DOXORUBICIN
     Indication: Triple negative breast cancer
     Dosage: NEOADJUVANT SYSTEMIC TREATMENT BASED ON THE KEYNOTE522 PROTOCOL
     Dates: start: 20220919, end: 20230210
  5. EPIRUBICIN HYDROCHLORIDE [Suspect]
     Active Substance: EPIRUBICIN HYDROCHLORIDE
     Indication: Triple negative breast cancer
     Dosage: NEOADJUVANT SYSTEMIC TREATMENT BASED ON THE KEYNOTE522 PROTOCOL
     Dates: start: 20220919, end: 20230210
  6. CYCLOPHOSPHAMIDE [Suspect]
     Active Substance: CYCLOPHOSPHAMIDE
     Indication: Triple negative breast cancer
     Dosage: NEOADJUVANT SYSTEMIC TREATMENT BASED ON THE KEYNOTE522 PROTOCOL
     Dates: start: 20220919, end: 20230210

REACTIONS (5)
  - Neutropenia [Unknown]
  - Weight increased [Unknown]
  - Toxicity to various agents [Unknown]
  - Nausea [Unknown]
  - Vomiting [Unknown]
